FAERS Safety Report 6719767-2 (Version None)
Quarter: 2010Q2

REPORT INFORMATION
  Report Type: 
  Country: None (occurrence: None)
  Receive Date: 20100511
  Receipt Date: 20100430
  Transmission Date: 20101027
  Serious: Yes (Death)
  Sender: FDA-Public Use
  Company Number: A0858679A

PATIENT
  Sex: Male
  Weight: 113.6 kg

DRUGS (9)
  1. AVANDIA [Suspect]
     Dosage: 8MG PER DAY
     Route: 048
  2. LANOXIN [Concomitant]
  3. DIOVAN [Concomitant]
  4. LASIX [Concomitant]
  5. CARDURA [Concomitant]
  6. ALDACTONE [Concomitant]
  7. GLUCOTROL XL [Concomitant]
  8. ALLOPURINOL [Concomitant]
  9. CARDIZEM [Concomitant]

REACTIONS (3)
  - DEATH [None]
  - EJECTION FRACTION DECREASED [None]
  - ISCHAEMIC CARDIOMYOPATHY [None]
